FAERS Safety Report 19606800 (Version 1)
Quarter: 2021Q3

REPORT INFORMATION
  Report Type: Spontaneous
  Country: GB (occurrence: GB)
  Receive Date: 20210725
  Receipt Date: 20210725
  Transmission Date: 20211014
  Serious: Yes (Hospitalization, Other)
  Sender: FDA-Public Use
  Company Number: GB-ROCHE-2873656

PATIENT
  Age: 42 Year
  Sex: Female
  Weight: 155 kg

DRUGS (5)
  1. IBUPROFEN. [Concomitant]
     Active Substance: IBUPROFEN
     Indication: PAIN
  2. TOCILIZUMAB. [Suspect]
     Active Substance: TOCILIZUMAB
     Indication: CORONAVIRUS INFECTION
     Route: 065
     Dates: start: 20210704, end: 20210704
  3. LANSOPRAZOLE. [Concomitant]
     Active Substance: LANSOPRAZOLE
     Indication: GASTROOESOPHAGEAL REFLUX DISEASE
  4. BARICITINIB. [Concomitant]
     Active Substance: BARICITINIB
     Indication: CLINICAL TRIAL PARTICIPANT
  5. HYOSCINE [Concomitant]
     Active Substance: SCOPOLAMINE
     Indication: GASTROINTESTINAL PAIN

REACTIONS (6)
  - Malaise [Recovered/Resolved]
  - Breast pain [Recovered/Resolved]
  - Skin infection [Recovering/Resolving]
  - Breast abscess [Recovered/Resolved]
  - Tenderness [Recovered/Resolved]
  - Erythema [Recovered/Resolved]

NARRATIVE: CASE EVENT DATE: 20210712
